FAERS Safety Report 24548190 (Version 1)
Quarter: 2024Q4

REPORT INFORMATION
  Report Type: Report from Study
  Country: BG (occurrence: BG)
  Receive Date: 20241025
  Receipt Date: 20241025
  Transmission Date: 20250114
  Serious: Yes (Other)
  Sender: TAKEDA
  Company Number: BG-TAKEDA-2024TUS106719

PATIENT
  Age: 27 Year
  Sex: Male

DRUGS (1)
  1. VEDOLIZUMAB [Suspect]
     Active Substance: VEDOLIZUMAB
     Indication: Colitis ulcerative
     Dosage: 300 MILLIGRAM
     Route: 042
     Dates: start: 20240909

REACTIONS (2)
  - Colitis ulcerative [Unknown]
  - Pyrexia [Unknown]

NARRATIVE: CASE EVENT DATE: 20241017
